FAERS Safety Report 8095072-X (Version None)
Quarter: 2011Q4

REPORT INFORMATION
  Report Type: 
  Country: None (occurrence: None)
  Receive Date: 20111222
  Receipt Date: 20111031
  Transmission Date: 20120403
  Serious: Yes (Hospitalization)
  Sender: FDA-Public Use
  Company Number: UTC-011796

PATIENT
  Age: 63 Year
  Sex: Female

DRUGS (7)
  1. DIURETICS (DIURETICS) [Concomitant]
  2. COUMADIN [Concomitant]
  3. OXYGEN (OXYGEN) [Concomitant]
  4. TYVASO [Suspect]
     Indication: COR PULMONALE CHRONIC
     Dosage: 216 MCG (54 MCG, 4 IN 1 D),INHALATION
     Route: 055
     Dates: start: 20110614
  5. DIGOXIN [Concomitant]
  6. REVATIO [Concomitant]
  7. LETAIRIS [Concomitant]

REACTIONS (1)
  - INFLUENZA [None]
